FAERS Safety Report 25831365 (Version 1)
Quarter: 2025Q3

REPORT INFORMATION
  Report Type: Spontaneous
  Country: US (occurrence: US)
  Receive Date: 20250922
  Receipt Date: 20250922
  Transmission Date: 20251021
  Serious: Yes (Other)
  Sender: BAYER HEALTHCARE PHARMACEUTICALS INC.
  Company Number: US-BAYER-2025A124068

PATIENT
  Age: 17 Year
  Sex: Female

DRUGS (1)
  1. LEVONORGESTREL [Suspect]
     Active Substance: LEVONORGESTREL
     Route: 015
     Dates: start: 2023

REACTIONS (2)
  - Uterine infection [Not Recovered/Not Resolved]
  - Pelvic pain [Not Recovered/Not Resolved]
